FAERS Safety Report 8320221 (Version 3)
Quarter: 2013Q3

REPORT INFORMATION
  Report Type: Spontaneous
  Country: US (occurrence: US)
  Receive Date: 20120103
  Receipt Date: 20130927
  Transmission Date: 20140515
  Serious: Yes (Other)
  Sender: FDA-Public Use
  Company Number: US-ASTRAZENECA-2010SE43583

PATIENT
  Age: 85 Year
  Sex: Female
  Weight: 88.5 kg

DRUGS (16)
  1. CRESTOR [Suspect]
     Indication: BLOOD CHOLESTEROL INCREASED
     Route: 048
  2. CRESTOR [Suspect]
     Indication: BLOOD TRIGLYCERIDES INCREASED
     Route: 048
  3. CRESTOR [Suspect]
     Indication: HIGH DENSITY LIPOPROTEIN INCREASED
     Route: 048
  4. CRESTOR [Suspect]
     Indication: BLOOD CHOLESTEROL INCREASED
     Route: 048
     Dates: start: 2011
  5. CRESTOR [Suspect]
     Indication: BLOOD TRIGLYCERIDES INCREASED
     Route: 048
     Dates: start: 2011
  6. CRESTOR [Suspect]
     Indication: HIGH DENSITY LIPOPROTEIN INCREASED
     Route: 048
     Dates: start: 2011
  7. NORVASC [Suspect]
     Indication: BLOOD PRESSURE INCREASED
     Route: 065
  8. PLAVIX [Concomitant]
     Indication: CARDIAC DISORDER
  9. ASPIRIN [Concomitant]
     Indication: ANTICOAGULANT THERAPY
  10. CELEBREX [Concomitant]
  11. LEXAPRO [Concomitant]
  12. DARVOCET N [Concomitant]
  13. MOTRIN [Concomitant]
  14. ESCITALOPRAM [Concomitant]
     Indication: DEPRESSION
  15. ESCITALOPRAM [Concomitant]
     Indication: NERVOUS SYSTEM DISORDER
  16. AVOPRIL [Concomitant]

REACTIONS (27)
  - Thrombosis [Unknown]
  - Venous thrombosis limb [Unknown]
  - Synovial cyst [Unknown]
  - Phlebitis [Unknown]
  - Epistaxis [Unknown]
  - Osteoarthritis [Unknown]
  - Osteoarthritis [Unknown]
  - Blood cholesterol abnormal [Unknown]
  - Hearing impaired [Unknown]
  - Hypothyroidism [Unknown]
  - Weight increased [Not Recovered/Not Resolved]
  - Blood pressure increased [Not Recovered/Not Resolved]
  - Balance disorder [Unknown]
  - Foot deformity [Unknown]
  - Tendonitis [Unknown]
  - Fluid retention [Unknown]
  - Oedema peripheral [Unknown]
  - Gait disturbance [Not Recovered/Not Resolved]
  - Oedema [Not Recovered/Not Resolved]
  - Blood triglycerides increased [Unknown]
  - Pain in extremity [Unknown]
  - Muscle spasms [Not Recovered/Not Resolved]
  - Memory impairment [Unknown]
  - Dizziness [Unknown]
  - Blood cholesterol increased [Unknown]
  - Intentional drug misuse [Unknown]
  - Drug dose omission [Not Recovered/Not Resolved]
